FAERS Safety Report 14573791 (Version 3)
Quarter: 2018Q2

REPORT INFORMATION
  Report Type: Spontaneous
  Country: US (occurrence: US)
  Receive Date: 20180226
  Receipt Date: 20180614
  Transmission Date: 20180711
  Serious: Yes (Hospitalization, Disabling, Other)
  Sender: FDA-Public Use
  Company Number: US-PFIZER INC-2018078065

PATIENT
  Age: 19 Year
  Sex: Female
  Weight: 64 kg

DRUGS (2)
  1. EUCRISA [Suspect]
     Active Substance: CRISABOROLE
     Indication: DERMATITIS ATOPIC
  2. EUCRISA [Suspect]
     Active Substance: CRISABOROLE
     Indication: ERYTHEMA
     Dosage: UNK, 2X/DAY
     Route: 061
     Dates: end: 201801

REACTIONS (7)
  - Thermal burn [Unknown]
  - Drug ineffective [Unknown]
  - Erythema [Recovering/Resolving]
  - Condition aggravated [Recovering/Resolving]
  - Scab [Recovering/Resolving]
  - Drug ineffective for unapproved indication [Unknown]
  - Wound secretion [Recovering/Resolving]
